FAERS Safety Report 8143968-2 (Version None)
Quarter: 2012Q1

REPORT INFORMATION
  Report Type: 
  Country: None (occurrence: None)
  Receive Date: 20120217
  Receipt Date: 20120217
  Transmission Date: 20120608
  Serious: Yes (Other)
  Sender: FDA-Public Use
  Company Number: None

PATIENT
  Sex: Female

DRUGS (1)
  1. REMICADE [Suspect]
     Indication: CROHN'S DISEASE
     Dosage: ABOUT 1 LITER -MEDIUM BAG-
     Dates: start: 20120120, end: 20120120

REACTIONS (10)
  - MIGRAINE [None]
  - SOMNOLENCE [None]
  - DEAFNESS TRANSITORY [None]
  - BONE PAIN [None]
  - DRUG INEFFECTIVE [None]
  - SOFT TISSUE DISORDER [None]
  - LETHARGY [None]
  - BLOOD MAGNESIUM DECREASED [None]
  - LOCAL SWELLING [None]
  - BLOOD POTASSIUM DECREASED [None]
